FAERS Safety Report 21074649 (Version 1)
Quarter: 2022Q3

REPORT INFORMATION
  Report Type: Spontaneous
  Country: US (occurrence: US)
  Receive Date: 20220713
  Receipt Date: 20220713
  Transmission Date: 20221027
  Serious: Yes (Other)
  Sender: FDA-Public Use
  Company Number: US-ASTELLAS-2022US024854

PATIENT
  Age: 73 Year
  Sex: Male

DRUGS (1)
  1. XTANDI [Suspect]
     Active Substance: ENZALUTAMIDE
     Indication: Prostate cancer metastatic
     Dosage: 160 MG, ONCE DAILY (4 CAPSULES ONCE DAILY)
     Route: 065
     Dates: start: 2022

REACTIONS (3)
  - Malignant neoplasm progression [Unknown]
  - Arthralgia [Unknown]
  - Dyspepsia [Unknown]
